FAERS Safety Report 7105953-9 (Version None)
Quarter: 2010Q4

REPORT INFORMATION
  Report Type: 
  Country: None (occurrence: None)
  Receive Date: 20101110
  Receipt Date: 20101029
  Transmission Date: 20110411
  Serious: Yes (Other)
  Sender: FDA-Public Use
  Company Number: TPH-00299

PATIENT
  Sex: Female

DRUGS (1)
  1. TRIQUILAR [Suspect]
     Indication: PRODUCT USED FOR UNKNOWN INDICATION
     Dosage: 1 DF ORAL
     Route: 048

REACTIONS (2)
  - ANGINA PECTORIS [None]
  - ARRHYTHMIA [None]
